FAERS Safety Report 7517512-4 (Version None)
Quarter: 2011Q2

REPORT INFORMATION
  Report Type: 
  Country: None (occurrence: None)
  Receive Date: 20110601
  Receipt Date: 20110517
  Transmission Date: 20111010
  Serious: Yes (Hospitalization, Other)
  Sender: FDA-Public Use
  Company Number: DE-BAYER-2011-042268

PATIENT
  Age: 66 Year
  Sex: Male

DRUGS (46)
  1. HALDOL [Interacting]
     Dosage: 5 MG, QD
     Route: 042
     Dates: start: 20050625, end: 20050625
  2. NEXIUM [Interacting]
     Dosage: 40 MG, QD
     Route: 042
     Dates: start: 20050622, end: 20050703
  3. KETANEST S [Interacting]
     Dosage: 50 MG, UNK
     Route: 042
     Dates: start: 20050702, end: 20050702
  4. LORAZEPAM [Interacting]
     Dosage: 2 MG, QD
     Dates: start: 20050630, end: 20050701
  5. PROPOFOL [Interacting]
     Dosage: 320 MG, QD
     Route: 042
     Dates: start: 20050622, end: 20050622
  6. CLONIDINE HCL [Interacting]
     Dosage: UNKNOWN DAILY AMOUNT
     Route: 042
     Dates: start: 20050624, end: 20050709
  7. LUDIOMIL [Interacting]
     Dosage: 25 MG, QD
     Route: 042
     Dates: start: 20050711, end: 20050711
  8. SCOPOLAMINE [Interacting]
     Dosage: 20 MG, QD
     Route: 042
     Dates: start: 20050709, end: 20050709
  9. MORPHINE [Interacting]
     Dosage: 19 EMPTY VIALS (EACH WITH 10 MG MORPHINE)
     Route: 048
     Dates: start: 20050622, end: 20050622
  10. KETANEST S [Interacting]
     Dosage: 100 MG, UNK
     Route: 042
     Dates: start: 20050708, end: 20050708
  11. PROPOFOL [Interacting]
     Dosage: UNKNOWN AMOUNT, SYRINGE PUMP
     Route: 042
     Dates: start: 20050624, end: 20050624
  12. TORSEMIDE [Interacting]
     Dosage: 10 MG, QD
     Route: 048
     Dates: start: 20050704, end: 20050711
  13. NOVALGIN [Interacting]
     Dosage: 1000 MG, QD
     Route: 042
     Dates: start: 20050709, end: 20050709
  14. METOCLOPRAMIDE [Interacting]
     Dosage: 16.9 MG, QD
     Dates: start: 20050709, end: 20050709
  15. KETANEST S [Interacting]
     Dosage: 200 MG, UNK
     Route: 042
     Dates: start: 20050705, end: 20050705
  16. NITRAZEPAM [Interacting]
     Dosage: 2 MG, UNK
     Dates: start: 20050702, end: 20050702
  17. CLORAZEPATE DIPOTASSIUM [Interacting]
     Dosage: 50 MG, QD
     Route: 042
     Dates: start: 20050627, end: 20050627
  18. CLORAZEPATE DIPOTASSIUM [Interacting]
     Dosage: 50 MG, QD
     Route: 042
     Dates: start: 20050708, end: 20050708
  19. HALDOL [Interacting]
     Dosage: 7.5 MG, QD
     Route: 042
     Dates: start: 20050627, end: 20050630
  20. METHYLPREDNISOLONE [Interacting]
     Dosage: 16 MG, QD
     Route: 042
     Dates: start: 20050624, end: 20050624
  21. TORSEMIDE [Interacting]
     Dosage: 30 MG, QD
     Route: 042
     Dates: start: 20050624, end: 20050703
  22. PROMETHAZINE HCL [Interacting]
     Indication: PRODUCT USED FOR UNKNOWN INDICATION
     Dosage: 50 MG, QD
     Route: 048
     Dates: start: 20050708, end: 20050708
  23. MORPHINE [Interacting]
     Dosage: 10 MG, BID
  24. HALDOL [Interacting]
     Dosage: 17.5 MG, QD
     Route: 042
     Dates: start: 20050702, end: 20050702
  25. LUDIOMIL [Interacting]
     Dosage: 75 MG, QD
     Route: 042
     Dates: start: 20050630, end: 20050630
  26. LUDIOMIL [Interacting]
     Dosage: UNKNOWN AMOUNT
     Route: 042
     Dates: start: 20050701, end: 20050704
  27. LUDIOMIL [Interacting]
     Dosage: 75 MG, QD
     Route: 042
     Dates: start: 20050705, end: 20050710
  28. ASPIRIN [Suspect]
     Indication: PRODUCT USED FOR UNKNOWN INDICATION
     Dosage: 100 MG, QD
     Route: 048
     Dates: start: 20050706, end: 20050706
  29. CLORAZEPATE DIPOTASSIUM [Interacting]
     Dosage: 150 MG, QD
     Route: 042
     Dates: start: 20050624, end: 20050624
  30. CLORAZEPATE DIPOTASSIUM [Interacting]
     Dosage: 425 MG, QD
     Route: 042
     Dates: start: 20050625, end: 20050625
  31. HALDOL [Interacting]
     Dosage: 7.5 MG, QD
     Route: 042
     Dates: start: 20050701, end: 20050701
  32. PROMETHAZINE HCL [Interacting]
     Dosage: 50 MG, QD
     Route: 042
     Dates: start: 20050709, end: 20050709
  33. PROPOFOL [Interacting]
     Dosage: 20 MG, QD
     Route: 042
     Dates: start: 20050625, end: 20050625
  34. CLORAZEPATE DIPOTASSIUM [Interacting]
     Dosage: 50 MG, QD
     Route: 042
     Dates: start: 20050629, end: 20050701
  35. CLORAZEPATE DIPOTASSIUM [Interacting]
     Dosage: 200 MG, QD
     Route: 042
     Dates: start: 20050705, end: 20050705
  36. LUDIOMIL [Interacting]
     Dosage: UNKNOWN AMOUNT
     Route: 042
     Dates: start: 20050628, end: 20050629
  37. TORSEMIDE [Interacting]
     Dosage: 20 MG, QD
     Dates: start: 20050622, end: 20050622
  38. TORSEMIDE [Interacting]
     Dosage: 70 MG, QD
     Route: 042
     Dates: start: 20050623, end: 20050623
  39. PROMETHAZINE HCL [Interacting]
     Dosage: 50 MG, QD
     Route: 048
     Dates: start: 20050710, end: 20050710
  40. CIPRO [Interacting]
     Indication: PRODUCT USED FOR UNKNOWN INDICATION
     Dosage: 400 MG, QD
     Route: 042
     Dates: start: 20050709, end: 20050711
  41. PROPOFOL [Interacting]
     Dosage: 250 MG, QD
     Route: 042
     Dates: start: 20050623, end: 20050623
  42. NITRAZEPAM [Interacting]
     Dosage: UNKNOWN AMOUNT
     Dates: start: 20050623, end: 20050624
  43. HALDOL [Interacting]
     Dosage: 17.5 MG, QD
     Route: 042
     Dates: start: 20050626, end: 20050626
  44. HALDOL [Interacting]
     Dosage: 7.5 MG, QD
     Route: 042
     Dates: start: 20050703, end: 20050704
  45. MADOPAR [Interacting]
     Dosage: 125 MG, QD
     Route: 048
     Dates: start: 20050707, end: 20050710
  46. NEXIUM [Interacting]
     Dosage: 20 MG, UNK
     Route: 048
     Dates: start: 20050622, end: 20050703

REACTIONS (6)
  - TRACHEOBRONCHITIS [None]
  - PERITONITIS [None]
  - CHOLANGITIS [None]
  - DISORIENTATION [None]
  - AGITATION [None]
  - FALL [None]
